FAERS Safety Report 8535698-X (Version None)
Quarter: 2012Q3

REPORT INFORMATION
  Report Type: 
  Country: None (occurrence: None)
  Receive Date: 20120725
  Receipt Date: 20120719
  Transmission Date: 20120928
  Serious: No
  Sender: FDA-Public Use
  Company Number: US-PFIZER INC-2012175085

PATIENT
  Sex: Female

DRUGS (11)
  1. ASPIRIN [Suspect]
     Dosage: UNK
  2. LISINOPRIL [Suspect]
     Dosage: UNK
  3. ABILIFY [Suspect]
     Dosage: UNK
  4. TETRACYCLINE HCL [Suspect]
     Dosage: UNK
  5. RANITIDINE [Suspect]
     Dosage: UNK
  6. ROPINIROLE [Suspect]
     Dosage: UNK
  7. DEMEROL [Suspect]
     Dosage: UNK
  8. SEROQUEL [Suspect]
     Dosage: UNK
  9. KEFLEX [Suspect]
     Dosage: UNK
  10. MORPHINE SULFATE [Suspect]
     Dosage: UNK
  11. BENADRYL [Suspect]
     Dosage: UNK

REACTIONS (1)
  - DRUG HYPERSENSITIVITY [None]
